FAERS Safety Report 24797411 (Version 1)
Quarter: 2025Q1

REPORT INFORMATION
  Report Type: Spontaneous
  Country: LK (occurrence: LK)
  Receive Date: 20250102
  Receipt Date: 20250102
  Transmission Date: 20250408
  Serious: Yes (Other)
  Sender: Harrow Health
  Company Number: LK-IMP-2024001173

PATIENT
  Age: 23 Year
  Sex: Female

DRUGS (4)
  1. MOXIFLOXACIN [Suspect]
     Active Substance: MOXIFLOXACIN
     Indication: Pseudomonas test positive
     Route: 061
  2. TOBRAMYCIN [Suspect]
     Active Substance: TOBRAMYCIN
     Indication: Pseudomonas test positive
     Route: 061
  3. GENTAMICIN [Suspect]
     Active Substance: GENTAMICIN
     Indication: Pseudomonas test positive
     Route: 057
  4. CEFTAZIDIME [Concomitant]
     Active Substance: CEFTAZIDIME
     Indication: Product used for unknown indication
     Route: 065

REACTIONS (6)
  - Ulcerative keratitis [Recovered/Resolved]
  - Disease progression [Recovered/Resolved]
  - Pseudomonas infection [Recovered/Resolved]
  - Hypopyon [Recovered/Resolved]
  - Visual acuity reduced [Recovered/Resolved]
  - Drug resistance [Unknown]
